FAERS Safety Report 8115982-4 (Version None)
Quarter: 2012Q1

REPORT INFORMATION
  Report Type: 
  Country: None (occurrence: None)
  Receive Date: 20120206
  Receipt Date: 20120123
  Transmission Date: 20120608
  Serious: Yes (Hospitalization)
  Sender: FDA-Public Use
  Company Number: AR-ROCHE-707024

PATIENT
  Sex: Female
  Weight: 100.8 kg

DRUGS (6)
  1. AVASTIN [Suspect]
     Indication: BREAST CANCER
     Dosage: DOSE FORM: VIALS, LAST DOSE PRIOR TO SAE 21 MAY 2010, DOSE LEVEL: 15 MG/KG
     Route: 042
  2. HERCEPTIN [Suspect]
     Indication: BREAST CANCER
     Dosage: FORM: VIALS, DOSE LEVEL: 6 MG/KG, LAST DOSE PRIOR TO SAE 21 MAY 2010, MAINTENANCE DOSE
     Route: 042
  3. DOCETAXEL [Suspect]
     Indication: BREAST CANCER
     Dosage: DOSAGE FORM: VIALS, LAST DOSE PRIOR TO SAE 21 MAY 2010, DOSE LEVEL: 75 MG/M2
     Route: 042
  4. HERCEPTIN [Suspect]
     Dosage: LOADING DOSE
     Route: 042
  5. CARBOPLATIN [Suspect]
     Indication: BREAST CANCER
     Dosage: FORM: VIALS DOSE LEVEL: 6 AUC, LAST DOSE PRIOR TO SAE: 21 MAY 2010
     Route: 042
  6. CITROFLAVONOIDES [Concomitant]
     Dosage: DRUG REPORTED AS: ACID ASCORBICA (CITROFLAVONIDE)

REACTIONS (3)
  - HYPOTENSION [None]
  - RESPIRATORY TRACT HAEMORRHAGE [None]
  - RECTAL HAEMORRHAGE [None]
